FAERS Safety Report 19647209 (Version 1)
Quarter: 2021Q3

REPORT INFORMATION
  Report Type: Spontaneous
  Country: IT (occurrence: IT)
  Receive Date: 20210802
  Receipt Date: 20210802
  Transmission Date: 20211014
  Serious: Yes (Death)
  Sender: FDA-Public Use
  Company Number: IT-HIKMA PHARMACEUTICALS USA INC.-IT-H14001-21-55053

PATIENT
  Age: 50 Year
  Sex: Male

DRUGS (4)
  1. FLUOROURACILE TEVA [Suspect]
     Active Substance: FLUOROURACIL
     Indication: ADENOCARCINOMA OF COLON
     Route: 042
     Dates: start: 20210329, end: 20210330
  2. ERBITUX [Suspect]
     Active Substance: CETUXIMAB
     Indication: PRODUCT USED FOR UNKNOWN INDICATION
     Route: 042
     Dates: start: 20210329, end: 20210329
  3. FLUOROURACILE TEVA [Suspect]
     Active Substance: FLUOROURACIL
     Indication: ADENOCARCINOMA OF COLON
     Route: 040
     Dates: start: 20210329, end: 20210329
  4. IRINTO [Suspect]
     Active Substance: IRINOTECAN HYDROCHLORIDE
     Indication: PRODUCT USED FOR UNKNOWN INDICATION
     Route: 042
     Dates: start: 20210329, end: 20210329

REACTIONS (8)
  - Toxicity to various agents [Fatal]
  - Duodenal ulcer haemorrhage [Fatal]
  - Renal failure [Fatal]
  - Melaena [Fatal]
  - Dysphagia [Fatal]
  - Oral candidiasis [Fatal]
  - Pancytopenia [Fatal]
  - Haematemesis [Fatal]

NARRATIVE: CASE EVENT DATE: 20210408
